FAERS Safety Report 23242398 (Version 1)
Quarter: 2023Q4

REPORT INFORMATION
  Report Type: Spontaneous
  Country: CN (occurrence: CN)
  Receive Date: 20231129
  Receipt Date: 20231129
  Transmission Date: 20240109
  Serious: Yes (Hospitalization)
  Sender: FDA-Public Use
  Company Number: CN-PFIZER INC-PV202300192584

PATIENT
  Age: 65 Year
  Sex: Male
  Weight: 35 kg

DRUGS (1)
  1. VFEND [Suspect]
     Active Substance: VORICONAZOLE
     Indication: Pneumonia fungal
     Dosage: 200 UG, 2X/DAY
     Route: 041
     Dates: start: 20231029, end: 20231031

REACTIONS (3)
  - Hallucination [Recovering/Resolving]
  - Somnolence [Recovering/Resolving]
  - Mental disorder [Recovering/Resolving]

NARRATIVE: CASE EVENT DATE: 20231029
